FAERS Safety Report 8874206 (Version 1)
Quarter: 2012Q4

REPORT INFORMATION
  Report Type: 
  Country: US (occurrence: US)
  Receive Date: 20121023
  Receipt Date: 20121023
  Transmission Date: 20130627
  Serious: No
  Sender: FDA-Public Use
  Company Number: US-PFIZER INC-2012263263

PATIENT
  Age: 51 Year
  Sex: Female
  Weight: 81.63 kg

DRUGS (2)
  1. NEURONTIN [Suspect]
     Indication: HEADACHE
     Dosage: UNK
     Route: 048
  2. NORCO [Interacting]
     Indication: PROCEDURAL PAIN
     Dosage: 20/650mg (two of 10/325mg), as needed
     Route: 048

REACTIONS (2)
  - Off label use [Unknown]
  - Inhibitory drug interaction [Unknown]
